FAERS Safety Report 5298722-6 (Version None)
Quarter: 2007Q2

REPORT INFORMATION
  Report Type: 
  Country: None (occurrence: None)
  Receive Date: 20070417
  Receipt Date: 20070412
  Transmission Date: 20071010
  Serious: Yes (Death, Other)
  Sender: FDA-Public Use
  Company Number: US-BAYER-200615817BWH

PATIENT
  Age: 42 Year
  Sex: Female

DRUGS (5)
  1. NEXAVAR [Suspect]
     Indication: LUNG NEOPLASM MALIGNANT
     Dosage: TOTAL DAILY DOSE: 800 MG  UNIT DOSE: 200 MG
     Route: 048
     Dates: start: 20060920, end: 20060925
  2. NEXAVAR [Suspect]
     Dosage: TOTAL DAILY DOSE: 200 MG  UNIT DOSE: 200 MG
     Route: 048
     Dates: start: 20061001
  3. LOVENOX [Concomitant]
     Dosage: TOTAL DAILY DOSE: 110 MG
  4. POTASSIUM SUPPLEMENT [Concomitant]
  5. VITAMIN D [Concomitant]

REACTIONS (8)
  - DECREASED APPETITE [None]
  - DISEASE PROGRESSION [None]
  - DIZZINESS [None]
  - LUNG DISORDER [None]
  - LUNG NEOPLASM MALIGNANT [None]
  - PLEURAL EFFUSION [None]
  - VERTIGO [None]
  - WEIGHT DECREASED [None]
